FAERS Safety Report 15622383 (Version 6)
Quarter: 2022Q2

REPORT INFORMATION
  Report Type: Spontaneous
  Country: US (occurrence: US)
  Receive Date: 20181115
  Receipt Date: 20220412
  Transmission Date: 20220721
  Serious: No
  Sender: FDA-Public Use
  Company Number: US-PFIZER INC-2018176347

PATIENT
  Age: 53 Year
  Sex: Male
  Weight: 146.2 kg

DRUGS (16)
  1. LYRICA [Suspect]
     Active Substance: PREGABALIN
     Indication: Neuropathy peripheral
     Dosage: 200 MG, 2X/DAY
     Route: 048
     Dates: start: 20181004
  2. LYRICA [Suspect]
     Active Substance: PREGABALIN
     Dosage: 200 MG, 2X/DAY
     Route: 048
     Dates: start: 20181207
  3. LYRICA [Suspect]
     Active Substance: PREGABALIN
     Dosage: 300 MG, 2X/DAY
     Route: 048
  4. LYRICA [Suspect]
     Active Substance: PREGABALIN
     Dosage: 150 MG, 2X/DAY
     Route: 048
  5. NOVOLOG [Concomitant]
     Active Substance: INSULIN ASPART
     Dosage: 5 IU, 2X/DAY  [5 UNITS, WITH BREAKFAST AND DINNER]
     Route: 058
     Dates: start: 20180522
  6. NOVOLOG [Concomitant]
     Active Substance: INSULIN ASPART
     Dosage: 5 IU, UNK [5 UNITS (SUBCUTANEOUS) WITH MEALS]
     Route: 058
     Dates: start: 20181207
  7. DICLOFENAC SODIUM [Concomitant]
     Active Substance: DICLOFENAC SODIUM
     Dosage: 4 G, 2X/DAY
     Route: 062
     Dates: start: 20181022
  8. LOSARTAN POTASSIUM [Concomitant]
     Active Substance: LOSARTAN POTASSIUM
     Dosage: 100 MG, DAILY
     Route: 048
     Dates: start: 20181120
  9. HYDROCHLOROTHIAZIDE [Concomitant]
     Active Substance: HYDROCHLOROTHIAZIDE
     Dosage: 12.5 MG, DAILY
     Route: 048
     Dates: start: 20180920
  10. CYMBALTA [Concomitant]
     Active Substance: DULOXETINE HYDROCHLORIDE
     Dosage: 30 MG, DAILY
     Route: 048
     Dates: start: 20171024
  11. TOUJEO [Concomitant]
     Active Substance: INSULIN GLARGINE
     Dosage: 80 IU, 1X/DAY (BEFORE BED FOR 90 DAYS)
     Route: 058
     Dates: start: 20171201
  12. TOUJEO [Concomitant]
     Active Substance: INSULIN GLARGINE
     Dosage: 70 IU, UNK
  13. LOVASTATIN [Concomitant]
     Active Substance: LOVASTATIN
     Dosage: 20 MG, 1X/DAY [BEDTIME]
     Route: 048
     Dates: start: 20171220
  14. TRULICITY [Concomitant]
     Active Substance: DULAGLUTIDE
     Dosage: 1.5 MG, WEEKLY
     Route: 058
     Dates: start: 20170221
  15. ASPIRIN [Concomitant]
     Active Substance: ASPIRIN
     Dosage: 81 MG, DAILY
     Route: 048
     Dates: start: 20130118
  16. METFORMIN HYDROCHLORIDE [Concomitant]
     Active Substance: METFORMIN HYDROCHLORIDE
     Dosage: 1000 MG, 2X/DAY [1 ORAL TWO TIMES DAILY]
     Route: 048
     Dates: start: 20181203

REACTIONS (2)
  - Weight fluctuation [Unknown]
  - Nephropathy [Unknown]
